FAERS Safety Report 7231111-3 (Version None)
Quarter: 2011Q1

REPORT INFORMATION
  Report Type: 
  Country: None (occurrence: None)
  Receive Date: 20110118
  Receipt Date: 20110110
  Transmission Date: 20110831
  Serious: Yes (Hospitalization, Other)
  Sender: FDA-Public Use
  Company Number: US-TEVA-263009USA

PATIENT
  Sex: Male
  Weight: 95.885 kg

DRUGS (3)
  1. ETANERCEPT [Suspect]
     Indication: PSORIATIC ARTHROPATHY
     Route: 058
     Dates: start: 20021210, end: 20040615
  2. METHOTREXATE SOLUTION FOR INJECTION, 25 MG/ML [Suspect]
     Route: 048
     Dates: start: 19971101, end: 20040622
  3. IBUPROFEN [Concomitant]

REACTIONS (6)
  - BETA HAEMOLYTIC STREPTOCOCCAL INFECTION [None]
  - HYPERHIDROSIS [None]
  - ARTHRALGIA [None]
  - PROSTATE CANCER [None]
  - PYREXIA [None]
  - PELVIC ABSCESS [None]
